FAERS Safety Report 8488444-2 (Version None)
Quarter: 2012Q3

REPORT INFORMATION
  Report Type: 
  Country: None (occurrence: None)
  Receive Date: 20120705
  Receipt Date: 20120625
  Transmission Date: 20120928
  Serious: Yes (Hospitalization, Other)
  Sender: FDA-Public Use
  Company Number: US-BAYER-2011-041778

PATIENT
  Age: 32 Year
  Sex: Female
  Weight: 81.633 kg

DRUGS (11)
  1. FLUTICASONE PROPIONATE [Concomitant]
     Indication: RHINITIS
     Dosage: UNK
     Dates: start: 20080101, end: 20100101
  2. MULTI-VITAMINS [Concomitant]
  3. IBUPROFEN [Concomitant]
  4. SINGULAIR [Concomitant]
     Indication: RHINITIS
     Dosage: UNK
     Dates: start: 20080101, end: 20100101
  5. NAPROSYN [Concomitant]
  6. YAZ [Suspect]
     Indication: PRODUCT USED FOR UNKNOWN INDICATION
     Dosage: UNK
     Dates: start: 20071201, end: 20080501
  7. SKELAXIN [Concomitant]
  8. PERCOCET [Concomitant]
  9. NASONEX [Concomitant]
  10. NSAID'S [Concomitant]
  11. FLEXERIL [Concomitant]
     Indication: BACK PAIN
     Dosage: UNK
     Dates: start: 20070101, end: 20100101

REACTIONS (22)
  - EMOTIONAL DISTRESS [None]
  - NERVOUS SYSTEM DISORDER [None]
  - CEREBRAL INFARCTION [None]
  - ANXIETY [None]
  - DEPRESSION [None]
  - EPISTAXIS [None]
  - NECK PAIN [None]
  - BRAIN INJURY [None]
  - ANHEDONIA [None]
  - STRESS [None]
  - MENTAL DISORDER [None]
  - TRANSVERSE SINUS THROMBOSIS [None]
  - COGNITIVE DISORDER [None]
  - FEAR [None]
  - HEADACHE [None]
  - GRAND MAL CONVULSION [None]
  - MENORRHAGIA [None]
  - AMNESIA [None]
  - DYSPHAGIA [None]
  - PAIN [None]
  - INJURY [None]
  - MENSTRUATION IRREGULAR [None]
